FAERS Safety Report 14597264 (Version 1)
Quarter: 2018Q1

REPORT INFORMATION
  Report Type: Report from Study
  Country: None (occurrence: US)
  Receive Date: 20180305
  Receipt Date: 20180305
  Transmission Date: 20180509
  Serious: Yes (Hospitalization, Other)
  Sender: FDA-Public Use
  Company Number: US-ABBVIE-18K-163-2269206-00

PATIENT
  Sex: Female

DRUGS (1)
  1. HUMIRA [Suspect]
     Active Substance: ADALIMUMAB
     Indication: CROHN^S DISEASE
     Route: 058

REACTIONS (6)
  - Loss of consciousness [Unknown]
  - Blood electrolytes decreased [Recovering/Resolving]
  - Hallucination [Recovered/Resolved]
  - Blood sodium decreased [Not Recovered/Not Resolved]
  - Vomiting [Recovered/Resolved]
  - Blood potassium decreased [Not Recovered/Not Resolved]
